FAERS Safety Report 12697878 (Version 2)
Quarter: 2016Q3

REPORT INFORMATION
  Report Type: Spontaneous
  Country: US (occurrence: US)
  Receive Date: 20160830
  Receipt Date: 20160901
  Transmission Date: 20161109
  Serious: No
  Sender: FDA-Public Use
  Company Number: US-PFIZER INC-2016396736

PATIENT
  Age: 50 Year
  Sex: Female
  Weight: 68.49 kg

DRUGS (1)
  1. NITROSTAT [Suspect]
     Active Substance: NITROGLYCERIN
     Indication: CARDIOSPASM
     Dosage: 0.4 MG, AS NEEDED
     Route: 060
     Dates: start: 201503

REACTIONS (1)
  - Hypoaesthesia oral [Recovered/Resolved]

NARRATIVE: CASE EVENT DATE: 201603
